FAERS Safety Report 7528220-8 (Version None)
Quarter: 2011Q2

REPORT INFORMATION
  Report Type: 
  Country: None (occurrence: None)
  Receive Date: 20110607
  Receipt Date: 20110602
  Transmission Date: 20111010
  Serious: Yes (Death, Congenital Anomaly)
  Sender: FDA-Public Use
  Company Number: AU-ASTRAZENECA-2011SE34116

PATIENT
  Age: 0 Year
  Sex: Female
  Weight: 2.3 kg

DRUGS (5)
  1. ATACAND [Suspect]
     Route: 064
     Dates: end: 20110120
  2. LABETALOL HYDROCHLORIDE [Concomitant]
     Route: 064
     Dates: start: 20110120
  3. ELEVIT RID [Concomitant]
     Route: 064
  4. BETAMETHASONE [Concomitant]
     Route: 064
     Dates: start: 20110215, end: 20110215
  5. BETAMETHASONE [Concomitant]
     Route: 064
     Dates: start: 20110301, end: 20110301

REACTIONS (2)
  - OLIGOHYDRAMNIOS [None]
  - RENAL DYSPLASIA [None]
